FAERS Safety Report 15902287 (Version 2)
Quarter: 2019Q1

REPORT INFORMATION
  Report Type: Spontaneous
  Country: US (occurrence: US)
  Receive Date: 20190201
  Receipt Date: 20190325
  Transmission Date: 20190417
  Serious: Yes (Other)
  Sender: FDA-Public Use
  Company Number: US-BIOGEN-2008BI033744

PATIENT
  Sex: Female

DRUGS (1)
  1. TYSABRI [Suspect]
     Active Substance: NATALIZUMAB
     Indication: MULTIPLE SCLEROSIS
     Route: 050
     Dates: start: 20070620, end: 20081208

REACTIONS (6)
  - Hodgkin^s disease nodular sclerosis stage II [Recovered/Resolved]
  - Cerebral thrombosis [Recovered/Resolved]
  - Off label use [Recovered/Resolved]
  - Vein disorder [Recovered/Resolved]
  - Pain [Recovered/Resolved]
  - Deep vein thrombosis [Unknown]

NARRATIVE: CASE EVENT DATE: 2007
